FAERS Safety Report 23962057 (Version 3)
Quarter: 2024Q3

REPORT INFORMATION
  Report Type: Spontaneous
  Country: US (occurrence: US)
  Receive Date: 20240611
  Receipt Date: 20240925
  Transmission Date: 20241017
  Serious: No
  Sender: PFIZER
  Company Number: US-PFIZER INC-202400188803

PATIENT
  Age: 9 Year
  Sex: Female

DRUGS (1)
  1. GENOTROPIN [Suspect]
     Active Substance: SOMATROPIN
     Dosage: UNK

REACTIONS (5)
  - Wrong technique in device usage process [Unknown]
  - Device information output issue [Unknown]
  - Device breakage [Unknown]
  - Device mechanical issue [Unknown]
  - Drug dose omission by device [Unknown]
